FAERS Safety Report 6882625-7 (Version None)
Quarter: 2010Q3

REPORT INFORMATION
  Report Type: 
  Country: None (occurrence: None)
  Receive Date: 20100729
  Receipt Date: 20100721
  Transmission Date: 20110219
  Serious: Yes (Other)
  Sender: FDA-Public Use
  Company Number: BR-ROCHE-706991

PATIENT
  Sex: Female
  Weight: 65 kg

DRUGS (2)
  1. ROACUTAN [Suspect]
     Indication: ACNE
     Route: 048
     Dates: start: 20090401
  2. ROACUTAN [Suspect]
     Route: 048
     Dates: start: 20090501, end: 20090801

REACTIONS (3)
  - ANAL FISSURE [None]
  - CONSTIPATION [None]
  - MUCOSAL DRYNESS [None]
